FAERS Safety Report 21884936 (Version 2)
Quarter: 2023Q1

REPORT INFORMATION
  Report Type: Spontaneous
  Country: US (occurrence: US)
  Receive Date: 20230119
  Receipt Date: 20230126
  Transmission Date: 20230417
  Serious: Yes (Life-Threatening, Hospitalization)
  Sender: FDA-Public Use
  Company Number: US-Calliditas-2023CAL00019

PATIENT
  Age: 63 Year
  Sex: Male

DRUGS (1)
  1. TARPEYO [Suspect]
     Active Substance: BUDESONIDE
     Indication: IgA nephropathy
     Dosage: 16 MG (4 MG CAPSULES) ONCE DAILY
     Route: 048
     Dates: start: 20221223

REACTIONS (6)
  - Peripheral swelling [Unknown]
  - Flank pain [Unknown]
  - Hypertension [Unknown]
  - Fluid retention [Unknown]
  - Hypoxia [Unknown]
  - Post procedural complication circulatory [Unknown]
